FAERS Safety Report 25973546 (Version 1)
Quarter: 2025Q4

REPORT INFORMATION
  Report Type: Report from Study
  Country: US (occurrence: US)
  Receive Date: 20251029
  Receipt Date: 20251029
  Transmission Date: 20260117
  Serious: Yes (Other)
  Sender: ACADIA PHARMACEUTICALS
  Company Number: US-ACADIA PHARMACEUTICALS INC.-ACA-2025-PIM-011516

PATIENT
  Age: 79 Year
  Sex: Female

DRUGS (1)
  1. NUPLAZID [Suspect]
     Active Substance: PIMAVANSERIN TARTRATE
     Indication: Dementia Alzheimer^s type
     Dosage: 34 MILLIGRAM, QD/EVERY NIGHT AT BEDTIME (QHS)
     Route: 048
     Dates: start: 202405

REACTIONS (6)
  - Hallucination [Unknown]
  - Amnesia [Unknown]
  - Sleep talking [Unknown]
  - Sleep disorder [Unknown]
  - Agitation [Unknown]
  - Product use in unapproved indication [Unknown]

NARRATIVE: CASE EVENT DATE: 20240501
